FAERS Safety Report 12041319 (Version 1)
Quarter: 2016Q1

REPORT INFORMATION
  Report Type: Spontaneous
  Country: US (occurrence: US)
  Receive Date: 20160208
  Receipt Date: 20160208
  Transmission Date: 20160526
  Serious: No
  Sender: FDA-Public Use
  Company Number: US-PFIZER INC-2016025178

PATIENT
  Age: 62 Year
  Sex: Female

DRUGS (28)
  1. XANAX [Concomitant]
     Active Substance: ALPRAZOLAM
     Dosage: 0.25 MG, UNK
  2. CYMBALTA [Concomitant]
     Active Substance: DULOXETINE HYDROCHLORIDE
     Dosage: 20 MG, UNK
  3. PROAIR HFA [Concomitant]
     Active Substance: ALBUTEROL SULFATE
     Dosage: 90 UG, UNK
  4. SYMBICORT [Concomitant]
     Active Substance: BUDESONIDE\FORMOTEROL FUMARATE DIHYDRATE
     Dosage: UNK (BUDESONIDE 80, FORMOTEROL FUMARATE 4.5)
  5. ZOVIRAX [Concomitant]
     Active Substance: ACYCLOVIR
     Dosage: 5 %, UNK
  6. PRISTIQ EXTENDED RELEASE [Concomitant]
     Active Substance: DESVENLAFAXINE SUCCINATE
     Dosage: 50 MG, UNK
  7. XELJANZ [Suspect]
     Active Substance: TOFACITINIB CITRATE
     Indication: RHEUMATOID ARTHRITIS
     Dosage: 10 MG, 2X/DAY
     Route: 048
     Dates: start: 20151111
  8. PREMARIN [Concomitant]
     Active Substance: ESTROGENS, CONJUGATED
     Dosage: 0.3 MG, UNK
  9. PROTONIX [Concomitant]
     Active Substance: PANTOPRAZOLE SODIUM
     Dosage: 20 MG, UNK
  10. VICODIN [Concomitant]
     Active Substance: ACETAMINOPHEN\HYDROCODONE BITARTRATE
     Dosage: 5 MG, UNK (HYDROCODONE BITARTRATE 5 MG, PARACETAMOL 300)
  11. VITAMIN D [Concomitant]
     Active Substance: CHOLECALCIFEROL
     Dosage: 1000 IU, UNK
  12. VITAMIN E [Concomitant]
     Active Substance: .ALPHA.-TOCOPHEROL
     Dosage: UNK
  13. ESTRACE [Concomitant]
     Active Substance: ESTRADIOL
     Dosage: 0.5 MG, UNK
  14. FENOFIBRATE. [Concomitant]
     Active Substance: FENOFIBRATE
     Dosage: 134 MG, UNK
  15. KLOR-CON [Concomitant]
     Active Substance: POTASSIUM CHLORIDE
     Dosage: 88 MEQ, UNK
  16. METOLAZONE. [Concomitant]
     Active Substance: METOLAZONE
     Dosage: 2.5 MG, UNK
  17. SEROQUEL [Concomitant]
     Active Substance: QUETIAPINE FUMARATE
     Dosage: 100 MG, UNK
  18. BYSTOLIC [Concomitant]
     Active Substance: NEBIVOLOL HYDROCHLORIDE
     Dosage: 5 MG, UNK
  19. METHOTREXATE [Concomitant]
     Active Substance: METHOTREXATE
     Dosage: 2.5 MG, UNK
  20. PRIMIDONE. [Concomitant]
     Active Substance: PRIMIDONE
     Dosage: 250 MG, UNK
  21. REXULTI [Concomitant]
     Active Substance: BREXPIPRAZOLE
     Dosage: 0.5 MG, UNK
  22. MAGNESIUM [Concomitant]
     Active Substance: MAGNESIUM
     Dosage: 300 MG, UNK
  23. SPIRIVA [Concomitant]
     Active Substance: TIOTROPIUM BROMIDE MONOHYDRATE
     Dosage: 18 UG, UNK
  24. SPIRONOLACTONE. [Concomitant]
     Active Substance: SPIRONOLACTONE
     Dosage: 25 MG, UNK
  25. GABAPENTIN. [Concomitant]
     Active Substance: GABAPENTIN
     Dosage: 100 MG, UNK
  26. HALCION [Concomitant]
     Active Substance: TRIAZOLAM
     Dosage: 0.25 MG, UNK
  27. TORSEMIDE. [Concomitant]
     Active Substance: TORSEMIDE
     Dosage: 5 MG, UNK
  28. VALTREX [Concomitant]
     Active Substance: VALACYCLOVIR HYDROCHLORIDE
     Dosage: 500 MG, UNK

REACTIONS (1)
  - Sinusitis [Unknown]
